FAERS Safety Report 25162946 (Version 1)
Quarter: 2025Q2

REPORT INFORMATION
  Report Type: Spontaneous
  Country: US (occurrence: US)
  Receive Date: 20250404
  Receipt Date: 20250404
  Transmission Date: 20250716
  Serious: No
  Sender: SANOFI AVENTIS
  Company Number: US-SA-2025SA096831

PATIENT
  Age: 60 Year
  Sex: Female
  Weight: 108.23 kg

DRUGS (31)
  1. DUPIXENT [Suspect]
     Active Substance: DUPILUMAB
     Indication: Asthma
     Route: 058
     Dates: start: 20250327
  2. SYMBICORT [Concomitant]
     Active Substance: BUDESONIDE\FORMOTEROL FUMARATE DIHYDRATE
  3. SPIRIVA RESPIMAT [Concomitant]
     Active Substance: TIOTROPIUM BROMIDE
  4. AMBIEN [Concomitant]
     Active Substance: ZOLPIDEM TARTRATE
  5. SPIRONOLACTONE [Concomitant]
     Active Substance: SPIRONOLACTONE
  6. JANUVIA [Concomitant]
     Active Substance: SITAGLIPTIN PHOSPHATE
  7. REPATHA [Concomitant]
     Active Substance: EVOLOCUMAB
  8. ONDANSETRON [Concomitant]
     Active Substance: ONDANSETRON
  9. NURTEC ODT [Concomitant]
     Active Substance: RIMEGEPANT SULFATE
  10. NITROGLYCERIN [Concomitant]
     Active Substance: NITROGLYCERIN
  11. NADOLOL [Concomitant]
     Active Substance: NADOLOL
  12. SINGULAIR [Concomitant]
     Active Substance: MONTELUKAST SODIUM
  13. REGLAN [Concomitant]
     Active Substance: METOCLOPRAMIDE HYDROCHLORIDE
  14. LOSARTAN POTASSIUM [Concomitant]
     Active Substance: LOSARTAN POTASSIUM
  15. LORAZEPAM [Concomitant]
     Active Substance: LORAZEPAM
  16. KETOCONAZOLE [Concomitant]
     Active Substance: KETOCONAZOLE
  17. ISOSORBIDE MONONITRATE [Concomitant]
     Active Substance: ISOSORBIDE MONONITRATE
  18. GABAPENTIN [Concomitant]
     Active Substance: GABAPENTIN
  19. FAMOTIDINE [Concomitant]
     Active Substance: FAMOTIDINE
  20. ETODOLAC [Concomitant]
     Active Substance: ETODOLAC
  21. VITAMIN D3 [Concomitant]
     Active Substance: CHOLECALCIFEROL
  22. VITAMINS [Concomitant]
     Active Substance: VITAMINS
  23. BACLOFEN [Concomitant]
     Active Substance: BACLOFEN
  24. ASPIRIN [Concomitant]
     Active Substance: ASPIRIN
  25. AMITRIPTYLINE HYDROCHLORIDE [Concomitant]
     Active Substance: AMITRIPTYLINE HYDROCHLORIDE
  26. ALBUTEROL SULFATE [Concomitant]
     Active Substance: ALBUTEROL SULFATE
  27. ACETYLCARNITINE [Concomitant]
     Active Substance: ACETYLCARNITINE
  28. VITAMIN B12 [Concomitant]
     Active Substance: CYANOCOBALAMIN
  29. ALPHA LIPOIC ACID [Concomitant]
     Active Substance: .ALPHA.-LIPOIC ACID
  30. DIETARY SUPPLEMENT [Concomitant]
     Active Substance: DIETARY SUPPLEMENT
  31. VITAMIN B6 [Concomitant]
     Active Substance: PYRIDOXINE HYDROCHLORIDE

REACTIONS (2)
  - Accidental exposure to product [Unknown]
  - Exposure via skin contact [Unknown]

NARRATIVE: CASE EVENT DATE: 20250327
